FAERS Safety Report 8601675 (Version 2)
Quarter: 2012Q4

REPORT INFORMATION
  Report Type: Spontaneous
  Country: US (occurrence: None)
  Receive Date: 20120525
  Receipt Date: 20121102
  Transmission Date: 20130627
  Serious: Yes (Hospitalization)
  Sender: FDA-Public Use
  Company Number: 1205-249

PATIENT
  Age: 71 Year
  Sex: Male

DRUGS (11)
  1. EYLEA [Suspect]
     Indication: MACULAR DEGENERATION
     Dosage: INTRAVITREAL
  2. MULTIVITAMIN (MULTIVITAMIN /00831701/) [Concomitant]
  3. FISH OIL (FISH OIL) [Concomitant]
  4. SAW PALMETTO (SERENOA REPENS) [Concomitant]
  5. WARFARIN (WARFARIN) [Concomitant]
  6. JANUMET (JANUMET) [Concomitant]
  7. DILTIAZEM (DILTIAZEM) (DILTIAZEM) [Concomitant]
  8. LISINOPRIL (LISINOPRIL) [Concomitant]
  9. ASPIRIN (ACETYLSALICYLIC ACID) [Concomitant]
  10. PRAVASTATIN (PRAVASTATIN) [Concomitant]
  11. YERVOY (IPILIMUMAB) [Concomitant]

REACTIONS (2)
  - Cardiac disorder [None]
  - Neoplasm malignant [None]
